FAERS Safety Report 10420712 (Version 1)
Quarter: 2014Q3

REPORT INFORMATION
  Report Type: Spontaneous
  Country: US (occurrence: None)
  Receive Date: 20140708
  Receipt Date: 20140708
  Transmission Date: 20150326
  Serious: Yes (Death, Hospitalization, Other)
  Sender: FDA-Public Use
  Company Number: US-JNJFOC-20130816682

PATIENT
  Age: 80 Year
  Sex: Male
  Weight: 107 kg

DRUGS (3)
  1. VELCADE(BORTEZOMIB) (INJECTION) [Suspect]
     Active Substance: BORTEZOMIB
     Indication: ACUTE MYELOID LEUKAEMIA
     Route: 058
     Dates: start: 20130725, end: 20130807
  2. DECITABINE (DECITABINE) LYOPHILIZED POWDER [Suspect]
     Active Substance: DECITABINE
     Indication: ACUTE MYELOID LEUKAEMIA
     Route: 042
     Dates: start: 20130725, end: 20130807
  3. SORAFENIB TOSILATE (SORAFENIB TOSILATE) TABLETS [Concomitant]
     Indication: ACUTE MYELOID LEUKAEMIA
     Route: 048

REACTIONS (3)
  - Lung infection [None]
  - Acute myeloid leukaemia [None]
  - Febrile neutropenia [None]

NARRATIVE: CASE EVENT DATE: 2013
